FAERS Safety Report 26191882 (Version 1)
Quarter: 2025Q4

REPORT INFORMATION
  Report Type: Spontaneous
  Country: EU (occurrence: EU)
  Receive Date: 20251223
  Receipt Date: 20251223
  Transmission Date: 20260117
  Serious: Yes (Other)
  Sender: BAYER HEALTHCARE PHARMACEUTICALS INC.
  Company Number: EU-BAYER-2025A167596

PATIENT
  Age: 47 Year
  Sex: Female
  Weight: 55 kg

DRUGS (2)
  1. ULTRAVIST [Suspect]
     Active Substance: IOPROMIDE
     Indication: Computerised tomogram
     Dosage: 100 ML, ONCE
     Route: 042
     Dates: start: 20251211, end: 20251211
  2. ULTRAVIST [Suspect]
     Active Substance: IOPROMIDE
     Indication: Haemangioblastoma

REACTIONS (2)
  - Cardiovascular disorder [Unknown]
  - Dyspnoea [Unknown]

NARRATIVE: CASE EVENT DATE: 20251211
